FAERS Safety Report 9655942 (Version 1)
Quarter: 2013Q4

REPORT INFORMATION
  Report Type: Spontaneous
  Country: US (occurrence: US)
  Receive Date: 20131030
  Receipt Date: 20131030
  Transmission Date: 20140711
  Serious: Yes (Other)
  Sender: FDA-Public Use
  Company Number: US-TEVA-440321USA

PATIENT
  Age: 38 Year
  Sex: Female

DRUGS (1)
  1. FENTORA [Suspect]
     Indication: PAIN
     Dates: end: 20131022

REACTIONS (3)
  - Drug withdrawal syndrome [Not Recovered/Not Resolved]
  - Pain [Not Recovered/Not Resolved]
  - Off label use [Unknown]
